FAERS Safety Report 24278835 (Version 2)
Quarter: 2024Q4

REPORT INFORMATION
  Report Type: Spontaneous
  Country: US (occurrence: US)
  Receive Date: 20240903
  Receipt Date: 20241025
  Transmission Date: 20250114
  Serious: No
  Sender: MYLAN
  Company Number: US-MYLANLABS-2024M1079767

PATIENT
  Age: 67 Year
  Sex: Female
  Weight: 70.31 kg

DRUGS (1)
  1. TYRVAYA [Suspect]
     Active Substance: VARENICLINE TARTRATE
     Indication: Dry eye
     Dosage: 0.03 MILLIGRAM, BID (ONE SPRAY TO EACH NOSTRIL TWICE DAILY, 12 HOURS APART)
     Route: 045
     Dates: start: 20240826

REACTIONS (4)
  - Lacrimation increased [Unknown]
  - Pain [Recovered/Resolved]
  - Paranasal sinus discomfort [Recovered/Resolved]
  - Nasal discomfort [Recovered/Resolved]

NARRATIVE: CASE EVENT DATE: 20240826
